FAERS Safety Report 6791138-2 (Version None)
Quarter: 2010Q2

REPORT INFORMATION
  Report Type: 
  Country: None (occurrence: None)
  Receive Date: 20100624
  Receipt Date: 20100615
  Transmission Date: 20101027
  Serious: Yes (Death, Hospitalization)
  Sender: FDA-Public Use
  Company Number: DK-WYE-H15830810

PATIENT
  Sex: Female

DRUGS (1)
  1. CORDARONE [Suspect]
     Indication: ATRIAL FIBRILLATION
     Dosage: DOSE NOT PROVIDED/GIVEN DAILY

REACTIONS (3)
  - ABDOMINAL PAIN [None]
  - PALPITATIONS [None]
  - SUDDEN DEATH [None]
